FAERS Safety Report 15357372 (Version 1)
Quarter: 2018Q4

REPORT INFORMATION
  Report Type: Report from Study
  Country: CA (occurrence: CA)
  Receive Date: 20180906
  Receipt Date: 20180906
  Transmission Date: 20190204
  Serious: Yes (Death)
  Sender: FDA-Public Use
  Company Number: CA-TAIHO ONCOLOGY  INC-EU-2018-01375

PATIENT
  Age: 53 Year
  Sex: Female
  Weight: 65.5 kg

DRUGS (1)
  1. LONSURF [Suspect]
     Active Substance: TIPIRACIL HYDROCHLORIDE\TRIFLURIDINE
     Indication: COLORECTAL CANCER METASTATIC
     Dosage: CYCLE 2 STARTED ON 02 AUGUST 2018
     Route: 048
     Dates: start: 20180705, end: 20180818

REACTIONS (1)
  - Death [Fatal]

NARRATIVE: CASE EVENT DATE: 20180818
